FAERS Safety Report 11094094 (Version 1)
Quarter: 2015Q2

REPORT INFORMATION
  Report Type: Spontaneous
  Country: ES (occurrence: ES)
  Receive Date: 20150506
  Receipt Date: 20150506
  Transmission Date: 20150821
  Serious: Yes (Hospitalization, Other)
  Sender: FDA-Public Use
  Company Number: ES-WATSON-2015-09054

PATIENT
  Age: 2 Year
  Sex: Male

DRUGS (2)
  1. ISONIAZID (WATSON LABORATORIES) [Suspect]
     Active Substance: ISONIAZID
     Indication: ANTIBIOTIC PROPHYLAXIS
     Dosage: 40 MG/KG, SINGLE (ABOUT 10 TABLETS)
     Route: 048
  2. ISONIAZID (WATSON LABORATORIES) [Suspect]
     Active Substance: ISONIAZID
     Dosage: UNK
     Route: 048

REACTIONS (6)
  - Hyperglycaemia [Recovered/Resolved]
  - Delirium [Recovered/Resolved]
  - Agitation [Recovered/Resolved]
  - Metabolic acidosis [Recovered/Resolved]
  - Accidental overdose [Recovered/Resolved]
  - Seizure [Recovered/Resolved]
